FAERS Safety Report 18456611 (Version 2)
Quarter: 2020Q4

REPORT INFORMATION
  Report Type: Report from Study
  Country: FR (occurrence: FR)
  Receive Date: 20201103
  Receipt Date: 20201111
  Transmission Date: 20210114
  Serious: Yes (Hospitalization, Other)
  Sender: FDA-Public Use
  Company Number: FR-BIOVITRUM-2020FR4773

PATIENT
  Sex: Female
  Weight: 76 kg

DRUGS (11)
  1. ACECLOFENAC [Concomitant]
     Active Substance: ACECLOFENAC
     Indication: OSTEOARTHRITIS
  2. KINERET [Suspect]
     Active Substance: ANAKINRA
     Indication: COVID-19
     Dates: start: 20200902, end: 20200907
  3. LOVENOX [Concomitant]
     Active Substance: ENOXAPARIN SODIUM
     Indication: THROMBOSIS PROPHYLAXIS
     Dates: start: 20200901
  4. ROVAMYCINE [Concomitant]
     Active Substance: SPIRAMYCIN
     Indication: INFECTION PROPHYLAXIS
     Dosage: 1,5 M UI 3 TIMES A DAY
     Dates: start: 20200902
  5. LEVOTHYROX [Concomitant]
     Active Substance: LEVOTHYROXINE
     Indication: HYPOTHYROIDISM
     Dosage: 100 MCG
  6. NEFOPAM [Concomitant]
     Active Substance: NEFOPAM
     Dates: start: 20200901
  7. CYMBALTA [Concomitant]
     Active Substance: DULOXETINE HYDROCHLORIDE
     Indication: ANXIETY
  8. PARACETAMOL [Concomitant]
     Active Substance: ACETAMINOPHEN
     Dosage: 1 GRAM
     Dates: start: 20200901
  9. PANTOPRAZOLE [Concomitant]
     Active Substance: PANTOPRAZOLE
  10. CYMBALTA [Concomitant]
     Active Substance: DULOXETINE HYDROCHLORIDE
     Indication: DEPRESSION
  11. VITAMINE C [Concomitant]
     Active Substance: ASCORBIC ACID
     Dates: start: 20200902

REACTIONS (3)
  - Respiratory disorder [Recovered/Resolved]
  - Condition aggravated [Recovered/Resolved]
  - Lung disorder [Unknown]
